FAERS Safety Report 8023005-0 (Version None)
Quarter: 2012Q1

REPORT INFORMATION
  Report Type: 
  Country: None (occurrence: None)
  Receive Date: 20120104
  Receipt Date: 20111229
  Transmission Date: 20120608
  Serious: Yes (Other)
  Sender: FDA-Public Use
  Company Number: US-PFIZER INC-2011316985

PATIENT
  Sex: Male
  Weight: 109 kg

DRUGS (4)
  1. INDERAL LA [Suspect]
     Dosage: 80 MG, 2X/DAY
  2. INDERAL LA [Suspect]
     Indication: MIGRAINE
     Dosage: 80 MG, DAILY
     Route: 048
     Dates: start: 19700101
  3. INDERAL LA [Suspect]
     Dosage: 120 MG, DAILY
     Dates: end: 20100101
  4. PROPRANOLOL HCL [Suspect]
     Indication: MIGRAINE
     Dosage: UNK
     Dates: start: 20100101

REACTIONS (3)
  - PAINFUL ERECTION [None]
  - PENILE CURVATURE [None]
  - LACERATION [None]
